FAERS Safety Report 7227973-6 (Version None)
Quarter: 2011Q1

REPORT INFORMATION
  Report Type: 
  Country: None (occurrence: None)
  Receive Date: 20110111
  Receipt Date: 20110111
  Transmission Date: 20110831
  Serious: Yes (Life-Threatening, Hospitalization, Disabling, Other)
  Sender: FDA-Public Use
  Company Number: None

PATIENT
  Age: 67 Year
  Sex: Female
  Weight: 67.1324 kg

DRUGS (6)
  1. DARVOCET-N 100 [Suspect]
     Indication: RHEUMATOID ARTHRITIS
     Dosage: 1 TAB 4 HRS AS NEEDED
  2. DARVOCET-N 100 [Suspect]
     Indication: PAIN
     Dosage: 1 TAB 4 HRS AS NEEDED
  3. DARVOCET [Suspect]
     Indication: PAIN
     Dosage: 1 TAB 4 HRS AS NEEDED
  4. DARVOCET [Suspect]
     Indication: RHEUMATOID ARTHRITIS
     Dosage: 1 TAB 4 HRS AS NEEDED
  5. GENERIC-PROPOXYPHEN-APAP  PO 650 MG TB [Suspect]
     Indication: PAIN
     Dosage: 1 TAB 4 HRS AS NEEDED
  6. GENERIC-PROPOXYPHEN-APAP  PO 650 MG TB [Suspect]
     Indication: RHEUMATOID ARTHRITIS
     Dosage: 1 TAB 4 HRS AS NEEDED

REACTIONS (9)
  - CYANOSIS [None]
  - FOAMING AT MOUTH [None]
  - EYE DISORDER [None]
  - UNEVALUABLE EVENT [None]
  - DYSKINESIA [None]
  - AMNESIA [None]
  - DYSPNOEA [None]
  - HEART RATE DECREASED [None]
  - CARDIAC PACEMAKER INSERTION [None]
